FAERS Safety Report 18626564 (Version 5)
Quarter: 2021Q1

REPORT INFORMATION
  Report Type: Report from Study
  Country: None (occurrence: AU)
  Receive Date: 20201216
  Receipt Date: 20210213
  Transmission Date: 20210419
  Serious: Yes (Hospitalization, Other)
  Sender: FDA-Public Use
  Company Number: AU-ABBVIE-20K-008-3688875-00

PATIENT
  Age: 68 Year
  Sex: Male

DRUGS (2)
  1. DUODOPA [Suspect]
     Active Substance: CARBIDOPA\LEVODOPA
  2. DUODOPA [Suspect]
     Active Substance: CARBIDOPA\LEVODOPA
     Indication: PARKINSON^S DISEASE
     Dosage: DUODOPA 100ML GEL CASSETTE.
     Route: 050
     Dates: start: 20170614

REACTIONS (17)
  - Mobility decreased [Unknown]
  - Confusional state [Unknown]
  - Unevaluable event [Unknown]
  - Staphylococcal infection [Unknown]
  - Behaviour disorder [Unknown]
  - Staphylococcal sepsis [Unknown]
  - Anxiety [Unknown]
  - Cardiac infection [Unknown]
  - Pulmonary thrombosis [Unknown]
  - Device related infection [Unknown]
  - Extradural abscess [Unknown]
  - Sleep disorder [Unknown]
  - Stoma site discharge [Unknown]
  - Anal incontinence [Unknown]
  - Aggression [Unknown]
  - Fall [Unknown]
  - Spinal operation [Unknown]

NARRATIVE: CASE EVENT DATE: 2019
